FAERS Safety Report 9916220 (Version 1)
Quarter: 2014Q1

REPORT INFORMATION
  Report Type: Spontaneous
  Country: US (occurrence: None)
  Receive Date: 20140220
  Receipt Date: 20140220
  Transmission Date: 20141002
  Serious: Yes (Hospitalization)
  Sender: FDA-Public Use
  Company Number: None

PATIENT
  Age: 66 Year
  Sex: Male
  Weight: 99.79 kg

DRUGS (1)
  1. WARFARIN [Suspect]
     Dosage: 2PILLS
     Route: 048
     Dates: start: 20130308, end: 20131014

REACTIONS (1)
  - Small intestinal haemorrhage [None]
